FAERS Safety Report 16386347 (Version 1)
Quarter: 2019Q2

REPORT INFORMATION
  Report Type: Report from Study
  Country: AU (occurrence: AU)
  Receive Date: 20190603
  Receipt Date: 20190603
  Transmission Date: 20190711
  Serious: Yes (Other)
  Sender: FDA-Public Use
  Company Number: AU-CELLTRION INC.-2019AU021554

PATIENT

DRUGS (2)
  1. INFLECTRA [Suspect]
     Active Substance: INFLIXIMAB-DYYB
     Indication: CROHN^S DISEASE
     Dosage: UNK
  2. 6 MP [Concomitant]
     Active Substance: MERCAPTOPURINE
     Dosage: UNK

REACTIONS (5)
  - Drug level decreased [Unknown]
  - Asthenia [Unknown]
  - Therapeutic response shortened [Unknown]
  - Rectal haemorrhage [Unknown]
  - Diarrhoea [Unknown]
